FAERS Safety Report 10158681 (Version 5)
Quarter: 2015Q1

REPORT INFORMATION
  Report Type: Report from Study
  Country: DE (occurrence: DE)
  Receive Date: 20140508
  Receipt Date: 20150122
  Transmission Date: 20150720
  Serious: Yes (Life-Threatening, Hospitalization)
  Sender: FDA-Public Use
  Company Number: DE-BIOGENIDEC-2014BI040989

PATIENT
  Age: 46 Year
  Sex: Female

DRUGS (7)
  1. AMITRIPTYLINE [Concomitant]
     Active Substance: AMITRIPTYLINE
     Route: 048
  2. MYDOCALM [Concomitant]
     Active Substance: TOLPERISONE
     Route: 048
  3. SATIVEX SPRAY [Concomitant]
     Active Substance: NABIXIMOLS
  4. SPASMEX [Concomitant]
     Active Substance: TROSPIUM CHLORIDE
     Route: 048
  5. TYSABRI [Suspect]
     Active Substance: NATALIZUMAB
     Indication: RELAPSING-REMITTING MULTIPLE SCLEROSIS
     Dates: start: 20120125, end: 20140114
  6. FAMPYRA [Concomitant]
     Active Substance: DALFAMPRIDINE
     Route: 048
  7. VIGANTOLETTEN [Concomitant]
     Active Substance: CHOLECALCIFEROL
     Route: 048

REACTIONS (3)
  - Immune reconstitution inflammatory syndrome [Unknown]
  - Epilepsy [Unknown]
  - Progressive multifocal leukoencephalopathy [Not Recovered/Not Resolved]

NARRATIVE: CASE EVENT DATE: 20140203
